FAERS Safety Report 19959209 (Version 1)
Quarter: 2021Q4

REPORT INFORMATION
  Report Type: Spontaneous
  Country: US (occurrence: US)
  Receive Date: 20211012
  Receipt Date: 20211012
  Transmission Date: 20220303
  Serious: Yes (Hospitalization)
  Sender: FDA-Public Use
  Company Number: None

PATIENT
  Sex: Female

DRUGS (35)
  1. TOBRAMYCIN [Suspect]
     Active Substance: TOBRAMYCIN
     Indication: Lung disorder
     Dosage: ?          OTHER DOSE:80 MG/2ML;OTHER FREQUENCY:SEE B.6(PAGE2);OTHER ROUTE:INJECTION INHALE 2ML VIA
     Dates: start: 20170131
  2. ACIDOPHILUS CAP 100MG [Concomitant]
  3. ALBUTEROL SULFATE [Concomitant]
     Active Substance: ALBUTEROL SULFATE
  4. ATIVAN TAB 2MG [Concomitant]
  5. ATROPINE SUL SOL 1% OP [Concomitant]
     Dosage: ?          OTHER STRENGTH:1%;
  6. BACLOFEN [Concomitant]
     Active Substance: BACLOFEN
  7. BACTROBAN CRE 2% [Concomitant]
     Dosage: ?          OTHER STRENGTH:2%;
  8. CIPRODEX SUS 0.301% [Concomitant]
     Dosage: ?          OTHER STRENGTH:0.301%;
  9. CLONIDINE TAB 0.1 MG [Concomitant]
  10. CYPROHEPTADINE HYDROCHLORIDE [Concomitant]
     Active Substance: CYPROHEPTADINE HYDROCHLORIDE
  11. DIASTAT ACDL GEL 5-10MG; [Concomitant]
  12. DULCOLAX SUP 10MG [Concomitant]
  13. FIASP INJ 100/ML [Concomitant]
  14. GABAPENTIN [Concomitant]
     Active Substance: GABAPENTIN
  15. GAS RELIEF DRO 20/0.3ML [Concomitant]
  16. KP VITAMIN D [Concomitant]
  17. LAMICTAL TAB 100MG [Concomitant]
  18. LANTUS SOLOS INJ 100/ML [Concomitant]
  19. MELATONIN [Concomitant]
     Active Substance: MELATONIN
  20. MIRALAX POW 3350 NF [Concomitant]
  21. MOMETASONE CRE 0.1% [Concomitant]
     Dosage: ?          OTHER STRENGTH:0.1%;
  22. MULTIPLE VIT TAB [Concomitant]
  23. NYSTATIN [Concomitant]
     Active Substance: NYSTATIN
     Dosage: ?          OTHER STRENGTH:100000;
  24. ONFI TAB 10MG [Concomitant]
  25. PANTOPRAZOLE SODIUM [Concomitant]
     Active Substance: PANTOPRAZOLE SODIUM
  26. PATADAY SOL 0.2% [Concomitant]
     Dosage: ?          OTHER STRENGTH:0.2%;
  27. REGLAN TAB 10MG [Concomitant]
  28. ROBINUL TAB 1MG [Concomitant]
  29. SOD CHLORIDE TAB 1GM [Concomitant]
  30. SODIUM CHLOR SOL 0.9% IRR [Concomitant]
     Dosage: ?          OTHER STRENGTH:0.9%;
  31. SODIUM CHLORIDE [Concomitant]
     Active Substance: SODIUM CHLORIDE
  32. TOBRAMYCIN NEB 300/5ML [Concomitant]
  33. TRAZODONE [Concomitant]
     Active Substance: TRAZODONE HYDROCHLORIDE
  34. URSODIOL TAB 250MG [Concomitant]
  35. XIFAXAN [Concomitant]
     Active Substance: RIFAXIMIN

REACTIONS (1)
  - Abdominal pain [None]
